FAERS Safety Report 25981253 (Version 1)
Quarter: 2025Q4

REPORT INFORMATION
  Report Type: Spontaneous
  Country: US (occurrence: US)
  Receive Date: 20251030
  Receipt Date: 20251030
  Transmission Date: 20260117
  Serious: Yes (Other)
  Sender: ORGANON
  Company Number: US-ORGANON-O2510USA001668

PATIENT
  Age: 26 Year
  Sex: Female
  Weight: 95.692 kg

DRUGS (1)
  1. NEXPLANON [Suspect]
     Active Substance: ETONOGESTREL
     Indication: Contraception
     Dosage: 1 IMPLANT, 68 MG FOR EVERY 3 YEARS

REACTIONS (2)
  - Heavy menstrual bleeding [Recovering/Resolving]
  - Product knowledge deficit [Unknown]

NARRATIVE: CASE EVENT DATE: 20230414
